FAERS Safety Report 15929748 (Version 2)
Quarter: 2019Q1

REPORT INFORMATION
  Report Type: Spontaneous
  Country: RS (occurrence: RS)
  Receive Date: 20190206
  Receipt Date: 20190219
  Transmission Date: 20190417
  Serious: Yes (Hospitalization)
  Sender: FDA-Public Use
  Company Number: PHHY2019RS026921

PATIENT
  Age: 10 Month
  Sex: Male

DRUGS (1)
  1. LINEX BABY (PROBIOTIC) [Suspect]
     Active Substance: PROBIOTICS NOS
     Indication: GASTROINTESTINAL INFLAMMATION
     Dosage: 6 GTT, UNK (1 X 1)
     Route: 048

REACTIONS (11)
  - Dehydration [Unknown]
  - Pyrexia [Unknown]
  - Hypovolaemia [Unknown]
  - Enteritis [Unknown]
  - Diarrhoea [Recovered/Resolved]
  - Electrolyte imbalance [Unknown]
  - Abdominal pain [Unknown]
  - Bacterial infection [Unknown]
  - Nausea [Unknown]
  - Abdominal distension [Unknown]
  - Haematochezia [Recovered/Resolved]
